FAERS Safety Report 13735166 (Version 1)
Quarter: 2017Q3

REPORT INFORMATION
  Report Type: Spontaneous
  Country: GB (occurrence: GB)
  Receive Date: 20170710
  Receipt Date: 20170710
  Transmission Date: 20171127
  Serious: Yes (Hospitalization)
  Sender: FDA-Public Use
  Company Number: GB-TORRENT-00015402

PATIENT
  Age: 83 Year
  Sex: Female
  Weight: 50 kg

DRUGS (11)
  1. CLOPIDOGREL [Suspect]
     Active Substance: CLOPIDOGREL BISULFATE
  2. FUROSEMIDE. [Concomitant]
     Active Substance: FUROSEMIDE
  3. MOVICOL [Concomitant]
     Active Substance: POLYETHYLENE GLYCOL 3350\POTASSIUM CHLORIDE\SODIUM BICARBONATE\SODIUM CHLORIDE
  4. NICORANDIL [Suspect]
     Active Substance: NICORANDIL
  5. BISOPROLOL [Concomitant]
     Active Substance: BISOPROLOL
  6. DEXCEL-PHARMA ISOSORBIDE MONONITRATE [Concomitant]
  7. LEVOTHYROXINE. [Concomitant]
     Active Substance: LEVOTHYROXINE
  8. ACETYLSALICYLIC ACID/ASPIRIN [Suspect]
     Active Substance: ASPIRIN
  9. ATORVASTATIN [Concomitant]
     Active Substance: ATORVASTATIN
  10. PARACETAMOL [Concomitant]
     Active Substance: ACETAMINOPHEN
  11. SERTRALINE HYDROCHLORIDE. [Suspect]
     Active Substance: SERTRALINE HYDROCHLORIDE

REACTIONS (3)
  - Large intestine polyp [Recovering/Resolving]
  - Rectal haemorrhage [Recovering/Resolving]
  - Large intestinal ulcer [Unknown]

NARRATIVE: CASE EVENT DATE: 20170616
